FAERS Safety Report 13600351 (Version 1)
Quarter: 2017Q2

REPORT INFORMATION
  Report Type: Spontaneous
  Country: US (occurrence: US)
  Receive Date: 20170601
  Receipt Date: 20170601
  Transmission Date: 20170830
  Serious: No
  Sender: FDA-Public Use
  Company Number: US-PFIZER INC-2017238007

PATIENT
  Age: 43 Year
  Sex: Male
  Weight: 122.47 kg

DRUGS (1)
  1. VIAGRA [Suspect]
     Active Substance: SILDENAFIL CITRATE
     Indication: ERECTILE DYSFUNCTION
     Dosage: 50MG TABLET, BY MOUTH, AS NEEDED, AS PART OF HIS REGULAR MONTHLY MEDICINE
     Route: 048

REACTIONS (3)
  - Suspected counterfeit product [Unknown]
  - Drug ineffective [Unknown]
  - Nasal congestion [Unknown]

NARRATIVE: CASE EVENT DATE: 201705
